FAERS Safety Report 10044497 (Version 2)
Quarter: 2014Q2

REPORT INFORMATION
  Report Type: Spontaneous
  Country: US (occurrence: US)
  Receive Date: 20140328
  Receipt Date: 20140418
  Transmission Date: 20141212
  Serious: No
  Sender: FDA-Public Use
  Company Number: US-PFIZER INC-2014087187

PATIENT
  Age: 60 Year
  Sex: Female
  Weight: 101.13 kg

DRUGS (15)
  1. XELJANZ [Suspect]
     Indication: RHEUMATOID ARTHRITIS
     Dosage: 5MG (1 TABLET) TWICE DAILY
     Route: 048
     Dates: start: 201401
  2. METHOTREXATE [Concomitant]
     Dosage: UNK
  3. FOLIC ACID [Concomitant]
     Dosage: UNK
  4. LOTREL [Concomitant]
     Dosage: UNK
  5. MILK THISTLE [Concomitant]
     Dosage: UNK
  6. SIMVASTATIN [Concomitant]
     Dosage: UNK
  7. PROVENTIL [Concomitant]
     Dosage: UNK
  8. SYSTANE EYE DROPS [Concomitant]
     Dosage: UNK
  9. ZYRTEC [Concomitant]
     Dosage: UNK
  10. ADVAIR DISKUS [Concomitant]
     Dosage: UNK
  11. ASPIRIN [Concomitant]
     Dosage: 81 MG
  12. ASTEPRO [Concomitant]
     Dosage: UNK
  13. BEPREVE [Concomitant]
     Dosage: UNK
  14. CENTRUM MULTIVITAMIN [Concomitant]
     Dosage: UNK
  15. ECOTRIN [Concomitant]
     Dosage: UNK

REACTIONS (3)
  - Pain in extremity [Not Recovered/Not Resolved]
  - Groin pain [Not Recovered/Not Resolved]
  - Musculoskeletal pain [Not Recovered/Not Resolved]
